FAERS Safety Report 8718853 (Version 4)
Quarter: 2013Q3

REPORT INFORMATION
  Report Type: Spontaneous
  Country: BE (occurrence: BE)
  Receive Date: 20120810
  Receipt Date: 20130723
  Transmission Date: 20140515
  Serious: Yes (Hospitalization)
  Sender: FDA-Public Use
  Company Number: BE-AMGEN-BELSP2012044851

PATIENT
  Age: 71 Year
  Sex: Male
  Weight: 65 kg

DRUGS (5)
  1. XGEVA [Suspect]
     Indication: METASTASES TO BONE
     Dosage: 120 MG, ONE TIME DOSE
     Route: 058
     Dates: start: 20120703
  2. CALCIUM GLUCONAT [Concomitant]
     Indication: HYPOCALCAEMIA
     Dosage: UNK
     Route: 048
  3. CALCIUM GLUCONAT [Concomitant]
     Dosage: 2 ML, UNK
     Dates: start: 20120711, end: 20120720
  4. KAOPECTATE                         /00139305/ [Concomitant]
     Dosage: UNK
  5. NATRIUM BICARBONATE ORION [Concomitant]
     Indication: HYPERKALAEMIA
     Dosage: 1000 ML, UNK
     Dates: start: 20120713, end: 20120718

REACTIONS (6)
  - Tumour lysis syndrome [Recovering/Resolving]
  - Blood lactate dehydrogenase increased [Recovered/Resolved]
  - Blood potassium increased [Recovered/Resolved]
  - Electrocardiogram QT prolonged [Unknown]
  - Renal impairment [Unknown]
  - Hypocalcaemia [Recovered/Resolved]
